FAERS Safety Report 5064246-4 (Version None)
Quarter: 2006Q3

REPORT INFORMATION
  Report Type: 
  Country: None (occurrence: None)
  Receive Date: 20060726
  Receipt Date: 20060726
  Transmission Date: 20061208
  Serious: Yes (Hospitalization)
  Sender: FDA-Public Use
  Company Number: None

PATIENT
  Sex: Female
  Weight: 67.4 kg

DRUGS (2)
  1. FERRIC GLUCONATE COMPLEX INJ FERRLECIT [Suspect]
     Indication: ANAEMIA
     Dosage: 200 MG X 1 DOSE OVER 2 HRS IV DRIP
     Route: 041
     Dates: start: 20060717, end: 20060717
  2. FERRIC GLUCONATE COMPLEX INJ FERRLECIT [Suspect]
     Indication: GASTROINTESTINAL HAEMORRHAGE
     Dosage: 200 MG X 1 DOSE OVER 2 HRS IV DRIP
     Route: 041
     Dates: start: 20060717, end: 20060717

REACTIONS (7)
  - BACK PAIN [None]
  - BLOOD PRESSURE DECREASED [None]
  - BLOOD PRESSURE INCREASED [None]
  - BURNING SENSATION [None]
  - INFUSION RELATED REACTION [None]
  - JOINT SWELLING [None]
  - MUSCULOSKELETAL CHEST PAIN [None]
